FAERS Safety Report 21138043 (Version 1)
Quarter: 2022Q3

REPORT INFORMATION
  Report Type: Spontaneous
  Country: FR (occurrence: FR)
  Receive Date: 20220727
  Receipt Date: 20220727
  Transmission Date: 20221026
  Serious: Yes (Other)
  Sender: FDA-Public Use
  Company Number: None

PATIENT

DRUGS (2)
  1. LAMICTAL [Suspect]
     Active Substance: LAMOTRIGINE
     Indication: Epilepsy
     Dosage: 1 DF, QD (1X/D)
     Route: 048
     Dates: start: 202103, end: 202112
  2. VALPROATE SODIUM [Suspect]
     Active Substance: VALPROATE SODIUM
     Indication: Epilepsy
     Dosage: UNK
     Route: 048
     Dates: start: 202104, end: 202109

REACTIONS (1)
  - Foetal macrosomia [Not Recovered/Not Resolved]

NARRATIVE: CASE EVENT DATE: 20211201
